FAERS Safety Report 17959260 (Version 1)
Quarter: 2020Q2

REPORT INFORMATION
  Report Type: Spontaneous
  Country: US (occurrence: US)
  Receive Date: 20200629
  Receipt Date: 20200629
  Transmission Date: 20200714
  Serious: Yes (Hospitalization, Other)
  Sender: FDA-Public Use
  Company Number: US-EMERGENT BIOSOLUTIONS,-20000402LT

PATIENT
  Age: 23 Year
  Sex: Male

DRUGS (3)
  1. HEROIN [Suspect]
     Active Substance: DIAMORPHINE
     Dosage: UNK
  2. NARCAN [Suspect]
     Active Substance: NALOXONE HYDROCHLORIDE
     Indication: OVERDOSE
     Dosage: 8 MILLIGRAM
     Route: 045
  3. ALCOHOL. [Concomitant]
     Active Substance: ALCOHOL
     Dosage: UNK
     Route: 065

REACTIONS (4)
  - Pulmonary oedema [Recovered/Resolved]
  - Pneumonia aspiration [Unknown]
  - Acute respiratory failure [Recovered/Resolved]
  - Traumatic lung injury [Recovered/Resolved]
